FAERS Safety Report 8435396-7 (Version None)
Quarter: 2012Q2

REPORT INFORMATION
  Report Type: 
  Country: None (occurrence: None)
  Receive Date: 20120614
  Receipt Date: 20120613
  Transmission Date: 20120825
  Serious: Yes (Other)
  Sender: FDA-Public Use
  Company Number: PHHY2012AR040870

PATIENT
  Sex: Male

DRUGS (1)
  1. GILENYA [Suspect]
     Indication: MULTIPLE SCLEROSIS
     Dosage: UNK UKN, UNK
     Route: 048
     Dates: start: 20120101, end: 20120507

REACTIONS (5)
  - HEPATIC ENZYME ABNORMAL [None]
  - BILIRUBIN CONJUGATED INCREASED [None]
  - ASPARTATE AMINOTRANSFERASE ABNORMAL [None]
  - ALANINE AMINOTRANSFERASE ABNORMAL [None]
  - GAMMA-GLUTAMYLTRANSFERASE INCREASED [None]
